FAERS Safety Report 11235131 (Version 2)
Quarter: 2015Q3

REPORT INFORMATION
  Report Type: Spontaneous
  Country: IT (occurrence: IT)
  Receive Date: 20150702
  Receipt Date: 20150729
  Transmission Date: 20151125
  Serious: Yes (Hospitalization)
  Sender: FDA-Public Use
  Company Number: IT-ASTRAZENECA-2015SE63513

PATIENT
  Age: 60 Year
  Sex: Female

DRUGS (7)
  1. MIRAPEXIN [Concomitant]
     Active Substance: PRAMIPEXOLE
     Indication: RESTLESS LEGS SYNDROME
     Route: 048
     Dates: start: 20110809
  2. EUTIROX [Concomitant]
     Active Substance: LEVOTHYROXINE SODIUM
     Indication: HYPOTHYROIDISM
     Route: 048
     Dates: start: 20131104
  3. SEROQUEL [Suspect]
     Active Substance: QUETIAPINE FUMARATE
     Indication: BIPOLAR DISORDER
     Route: 048
     Dates: start: 2014
  4. LUMINALE [Concomitant]
     Active Substance: PHENOBARBITAL
     Indication: AGITATION
     Route: 048
     Dates: start: 20110809
  5. ATENOLOLO EG [Concomitant]
     Indication: ATRIAL FIBRILLATION
     Route: 048
     Dates: start: 20140626
  6. DEPAKIN [Concomitant]
     Active Substance: VALPROATE SODIUM
     Indication: PETIT MAL EPILEPSY
     Dosage: 200 MG/ML, 1 DF WITH UNKNOWN FREQUENCY
     Route: 048
     Dates: start: 20110809
  7. DITROPAN [Concomitant]
     Active Substance: OXYBUTYNIN CHLORIDE
     Indication: MICTURITION DISORDER
     Route: 048
     Dates: start: 20121101

REACTIONS (8)
  - Hyperammonaemia [Unknown]
  - Electrocardiogram QT prolonged [Recovered/Resolved]
  - Confusional state [Unknown]
  - Tremor [Unknown]
  - Asthenia [Unknown]
  - Electrocardiogram T wave abnormal [Recovered/Resolved]
  - Electrocardiogram Q wave abnormal [Recovered/Resolved]
  - Balance disorder [Unknown]

NARRATIVE: CASE EVENT DATE: 20150418
